FAERS Safety Report 17720151 (Version 1)
Quarter: 2020Q2

REPORT INFORMATION
  Report Type: Spontaneous
  Country: US (occurrence: US)
  Receive Date: 20200428
  Receipt Date: 20200428
  Transmission Date: 20200714
  Serious: Yes (Other)
  Sender: FDA-Public Use
  Company Number: US-PURDUE-USA-2020-0152076

PATIENT
  Sex: Female

DRUGS (3)
  1. OXYCONTIN [Suspect]
     Active Substance: OXYCODONE HYDROCHLORIDE
     Indication: PAIN
     Dosage: 90 MG, TID
     Route: 048
     Dates: end: 202002
  2. OXYCONTIN [Suspect]
     Active Substance: OXYCODONE HYDROCHLORIDE
     Dosage: 30 MG, TID
     Route: 048
     Dates: start: 2015
  3. OXYCONTIN [Suspect]
     Active Substance: OXYCODONE HYDROCHLORIDE
     Dosage: 60 MG, TID
     Route: 048

REACTIONS (14)
  - Panic attack [Unknown]
  - Anxiety [Unknown]
  - Constipation [Unknown]
  - Personality change [Unknown]
  - Dyspnoea [Unknown]
  - Off label use [Unknown]
  - Haemorrhoids [Unknown]
  - Drug dose titration not performed [Unknown]
  - Acute respiratory failure [Unknown]
  - Road traffic accident [Unknown]
  - Rotator cuff syndrome [Unknown]
  - Social problem [Unknown]
  - Drug withdrawal syndrome [Not Recovered/Not Resolved]
  - Stress [Unknown]
